FAERS Safety Report 13530258 (Version 1)
Quarter: 2017Q2

REPORT INFORMATION
  Report Type: Spontaneous
  Country: US (occurrence: US)
  Receive Date: 20170509
  Receipt Date: 20170509
  Transmission Date: 20170830
  Serious: No
  Sender: FDA-Public Use
  Company Number: US-UCBSA-2016022207

PATIENT
  Sex: Male

DRUGS (1)
  1. NEUPRO [Suspect]
     Active Substance: ROTIGOTINE
     Indication: RESTLESS LEGS SYNDROME
     Dosage: UNKNOWN DOSE (4 MG PATCH)
     Dates: start: 2013

REACTIONS (2)
  - Gambling [Not Recovered/Not Resolved]
  - Impulse-control disorder [Not Recovered/Not Resolved]
